FAERS Safety Report 16958716 (Version 1)
Quarter: 2019Q4

REPORT INFORMATION
  Report Type: Spontaneous
  Country: FR (occurrence: FR)
  Receive Date: 20191024
  Receipt Date: 20191024
  Transmission Date: 20200122
  Serious: Yes (Hospitalization, Other)
  Sender: FDA-Public Use
  Company Number: FR-GLAXOSMITHKLINE-FR2019192583

PATIENT
  Age: 33 Year
  Sex: Male
  Weight: 82 kg

DRUGS (4)
  1. WELLVONE [Suspect]
     Active Substance: ATOVAQUONE
     Indication: PARASITIC PNEUMONIA
     Dosage: 2 DF, QD
     Route: 048
  2. ADVAGRAF [Suspect]
     Active Substance: TACROLIMUS
     Indication: IMMUNOSUPPRESSANT DRUG THERAPY
     Dosage: 6.5 MG, QD
     Route: 048
  3. LINEZOLID. [Suspect]
     Active Substance: LINEZOLID
     Indication: RENAL GRAFT INFECTION
     Dosage: 1200 MG, QD
     Route: 048
     Dates: start: 20190911, end: 20190930
  4. CELLCEPT [Suspect]
     Active Substance: MYCOPHENOLATE MOFETIL\MYCOPHENOLATE MOFETIL HYDROCHLORIDE
     Indication: IMMUNOSUPPRESSANT DRUG THERAPY
     Dosage: 500 MG, QD
     Route: 048
     Dates: end: 20190930

REACTIONS (2)
  - Pancytopenia [Recovered/Resolved]
  - Vomiting [Recovered/Resolved]

NARRATIVE: CASE EVENT DATE: 20190918
